FAERS Safety Report 12110725 (Version 1)
Quarter: 2016Q1

REPORT INFORMATION
  Report Type: Report from Study
  Country: US (occurrence: US)
  Receive Date: 20160224
  Receipt Date: 20160224
  Transmission Date: 20160526
  Serious: Yes (Other)
  Sender: FDA-Public Use
  Company Number: US-GILEAD-2016-0199534

PATIENT
  Sex: Male

DRUGS (3)
  1. SOFOSBUVIR [Suspect]
     Active Substance: SOFOSBUVIR
     Indication: HEPATITIS C
     Dosage: 1 DF, QD
     Route: 048
     Dates: start: 201512
  2. RIBAVIRIN. [Suspect]
     Active Substance: RIBAVIRIN
     Indication: HEPATITIS C
     Dosage: 2 DF, BID
     Route: 048
     Dates: start: 201512
  3. RIBAVIRIN. [Suspect]
     Active Substance: RIBAVIRIN
     Dosage: 3 DF, QD (2 DF AM AND 1 DF EVENING)
     Route: 048

REACTIONS (9)
  - Feeling abnormal [Unknown]
  - Confusional state [Unknown]
  - Skin warm [Unknown]
  - Hepatic pain [Unknown]
  - Asthenia [Unknown]
  - Pallor [Unknown]
  - Dizziness [Unknown]
  - Abdominal pain upper [Unknown]
  - Anal haemorrhage [Unknown]
